FAERS Safety Report 19469868 (Version 1)
Quarter: 2021Q2

REPORT INFORMATION
  Report Type: Spontaneous
  Country: FR (occurrence: FR)
  Receive Date: 20210628
  Receipt Date: 20210628
  Transmission Date: 20210717
  Serious: Yes (Other)
  Sender: FDA-Public Use
  Company Number: FR-MYLANLABS-2021M1033322

PATIENT
  Age: 71 Year
  Sex: Male
  Weight: 74 kg

DRUGS (1)
  1. PENTOXIFYLLINE MYLAN [Suspect]
     Active Substance: PENTOXIFYLLINE
     Indication: RENAL TRANSPLANT
     Dosage: 3 DOSAGE FORM, QD

REACTIONS (3)
  - Intentional product use issue [Unknown]
  - Treatment noncompliance [Unknown]
  - Off label use [Unknown]
